FAERS Safety Report 20576617 (Version 1)
Quarter: 2022Q1

REPORT INFORMATION
  Report Type: Spontaneous
  Country: US (occurrence: None)
  Receive Date: 20220309
  Receipt Date: 20220309
  Transmission Date: 20220423
  Serious: Yes (Other)
  Sender: FDA-Public Use
  Company Number: None

PATIENT
  Age: 59 Year
  Sex: Female

DRUGS (1)
  1. CAPECITABINE [Suspect]
     Active Substance: CAPECITABINE
     Dosage: FREQUENCY : TWICE A DAY;?
     Route: 048
     Dates: start: 202007

REACTIONS (8)
  - Palmar-plantar erythrodysaesthesia syndrome [None]
  - Dry skin [None]
  - Oral mucosal blistering [None]
  - Nausea [None]
  - Vomiting [None]
  - Abdominal pain [None]
  - Therapy interrupted [None]
  - Dehydration [None]

NARRATIVE: CASE EVENT DATE: 20220309
